FAERS Safety Report 8061179 (Version 3)
Quarter: 2013Q4

REPORT INFORMATION
  Report Type: Spontaneous
  Country: US (occurrence: US)
  Receive Date: 20110729
  Receipt Date: 20131216
  Transmission Date: 20140711
  Serious: Yes (Death, Hospitalization)
  Sender: FDA-Public Use
  Company Number: US-GLAXOSMITHKLINE-A0938684A

PATIENT
  Age: 68 Year
  Sex: Male

DRUGS (1)
  1. AVANDIA [Suspect]
     Indication: DIABETES MELLITUS
     Dosage: 4MG PER DAY
     Route: 048
     Dates: start: 20000801, end: 20030507

REACTIONS (4)
  - Embolic cerebral infarction [Fatal]
  - Atrial fibrillation [Unknown]
  - Cerebrovascular accident [Unknown]
  - Cardiovascular disorder [Fatal]
